FAERS Safety Report 7544893 (Version 9)
Quarter: 2013Q3

REPORT INFORMATION
  Report Type: Spontaneous
  Country: US (occurrence: US)
  Receive Date: 20100818
  Receipt Date: 20130919
  Transmission Date: 20140515
  Serious: Yes (Hospitalization)
  Sender: FDA-Public Use
  Company Number: US-BIOGENIDEC-2010BI027252

PATIENT
  Age: 53 Year
  Sex: Female
  Weight: 81 kg

DRUGS (8)
  1. AVONEX [Suspect]
     Indication: MULTIPLE SCLEROSIS
     Route: 030
     Dates: start: 20000427, end: 2005
  2. AVONEX [Suspect]
     Indication: MULTIPLE SCLEROSIS
     Route: 030
     Dates: start: 2005, end: 2008
  3. AVONEX [Suspect]
     Indication: MULTIPLE SCLEROSIS
     Route: 030
     Dates: start: 201003
  4. AVONEX [Suspect]
     Indication: MULTIPLE SCLEROSIS
     Route: 030
     Dates: start: 20100618, end: 20120517
  5. AVONEX [Suspect]
     Indication: MULTIPLE SCLEROSIS
     Route: 030
  6. TOPROL XL [Concomitant]
     Indication: HYPERTENSION
  7. NAPROXEN [Concomitant]
     Indication: ARTHRITIS
     Route: 048
  8. MOBIC [Concomitant]
     Indication: ARTHRITIS

REACTIONS (28)
  - Lumbar vertebral fracture [Recovered/Resolved]
  - Upper limb fracture [Recovered/Resolved]
  - Fall [Recovered/Resolved]
  - Back pain [Recovered/Resolved]
  - Loss of consciousness [Recovered/Resolved]
  - Joint swelling [Recovered/Resolved]
  - Wrist fracture [Recovered/Resolved]
  - Spinal fracture [Recovered/Resolved]
  - Intervertebral disc degeneration [Not Recovered/Not Resolved]
  - H1N1 influenza [Recovered/Resolved]
  - Pneumonia [Recovered/Resolved]
  - Migraine [Recovered/Resolved]
  - Multiple sclerosis relapse [Recovered/Resolved]
  - Back disorder [Not Recovered/Not Resolved]
  - Mobility decreased [Not Recovered/Not Resolved]
  - Gastric ulcer [Not Recovered/Not Resolved]
  - Hypoaesthesia [Not Recovered/Not Resolved]
  - Visual impairment [Recovered/Resolved]
  - Abasia [Not Recovered/Not Resolved]
  - Injection site mass [Not Recovered/Not Resolved]
  - Procedural pain [Recovered/Resolved]
  - Injection site haemorrhage [Recovered/Resolved]
  - Skin atrophy [Not Recovered/Not Resolved]
  - Musculoskeletal disorder [Not Recovered/Not Resolved]
  - Skin discolouration [Not Recovered/Not Resolved]
  - Injection site bruising [Not Recovered/Not Resolved]
  - Dizziness [Not Recovered/Not Resolved]
  - Pain in extremity [Not Recovered/Not Resolved]
